FAERS Safety Report 4414777-2 (Version None)
Quarter: 2004Q3

REPORT INFORMATION
  Report Type: 
  Country: None (occurrence: None)
  Receive Date: 20040804
  Receipt Date: 20030919
  Transmission Date: 20050211
  Serious: No
  Sender: FDA-Public Use
  Company Number: US-BRISTOL-MYERS SQUIBB COMPANY-12389474

PATIENT
  Age: 75 Year
  Sex: Female
  Weight: 72 kg

DRUGS (7)
  1. GLUCOVANCE [Suspect]
     Indication: DIABETES MELLITUS
     Route: 048
  2. DYAZIDE [Concomitant]
  3. POTASSIUM [Concomitant]
  4. OCUVITE [Concomitant]
  5. TYLENOL [Concomitant]
  6. ASPIRIN [Concomitant]
  7. VITAMIN B-12 [Concomitant]
     Dosage: ^INJECTIONS^

REACTIONS (1)
  - ARTHRALGIA [None]
